FAERS Safety Report 23830583 (Version 2)
Quarter: 2024Q2

REPORT INFORMATION
  Report Type: Spontaneous
  Country: US (occurrence: US)
  Receive Date: 20240508
  Receipt Date: 20240625
  Transmission Date: 20240715
  Serious: No
  Sender: FDA-Public Use
  Company Number: US-JNJFOC-20240504070

PATIENT
  Age: 24 Year
  Sex: Female

DRUGS (1)
  1. NEUTROGENA BEACH DEFENSE WATER PLUS SUN PROTECTION SUNSCREEN BROAD SPE [Suspect]
     Active Substance: AVOBENZONE\HOMOSALATE\OCTISALATE\OCTOCRYLENE
     Indication: Prophylaxis against solar radiation
     Route: 061
     Dates: start: 20240422

REACTIONS (3)
  - Application site rash [Not Recovered/Not Resolved]
  - Application site swelling [Unknown]
  - Application site pruritus [Unknown]

NARRATIVE: CASE EVENT DATE: 20240423
